FAERS Safety Report 18410946 (Version 1)
Quarter: 2020Q4

REPORT INFORMATION
  Report Type: Spontaneous
  Country: US (occurrence: US)
  Receive Date: 20201021
  Receipt Date: 20201021
  Transmission Date: 20210114
  Serious: No
  Sender: FDA-Public Use
  Company Number: US-GW PHARMA-202010USGW03572

PATIENT

DRUGS (1)
  1. EPIDIOLEX [Suspect]
     Active Substance: CANNABIDIOL
     Indication: LENNOX-GASTAUT SYNDROME
     Dosage: 500 MILLIGRAM, BID
     Route: 048
     Dates: start: 20200403

REACTIONS (4)
  - Diarrhoea [Recovering/Resolving]
  - Drug ineffective [Unknown]
  - Haemorrhoids [Unknown]
  - Sleep disorder [Unknown]

NARRATIVE: CASE EVENT DATE: 202004
